FAERS Safety Report 7743617-9 (Version None)
Quarter: 2011Q3

REPORT INFORMATION
  Report Type: 
  Country: None (occurrence: None)
  Receive Date: 20110912
  Receipt Date: 20110902
  Transmission Date: 20111222
  Serious: Yes (Other)
  Sender: FDA-Public Use
  Company Number: AR-AMGEN-ARGCT2011045561

PATIENT
  Sex: Female

DRUGS (4)
  1. PACLITAXEL [Concomitant]
     Dosage: UNK
     Dates: start: 20100915
  2. MEPREDNISONE [Concomitant]
     Dosage: 8 MG, UNK
     Dates: start: 20101217
  3. DENOSUMAB [Suspect]
     Indication: METASTASES TO BONE
     Dosage: UNK
     Dates: end: 20110328
  4. NAVELBINE [Concomitant]
     Dosage: UNK
     Dates: start: 20100915

REACTIONS (1)
  - PAIN IN JAW [None]
